FAERS Safety Report 9458352 (Version 2)
Quarter: 2013Q3

REPORT INFORMATION
  Report Type: Spontaneous
  Country: JP (occurrence: JP)
  Receive Date: 20130814
  Receipt Date: 20130904
  Transmission Date: 20140515
  Serious: Yes (Hospitalization)
  Sender: FDA-Public Use
  Company Number: JP-PFIZER INC-2013231826

PATIENT
  Age: 68 Year
  Sex: Male

DRUGS (1)
  1. SUTENT [Suspect]
     Dosage: 12.5 MG, 1X/DAY
     Route: 048
     Dates: start: 201210, end: 20130630

REACTIONS (1)
  - Pneumonia [Recovered/Resolved]
